FAERS Safety Report 18115575 (Version 2)
Quarter: 2020Q3

REPORT INFORMATION
  Report Type: Spontaneous
  Country: CL (occurrence: CL)
  Receive Date: 20200805
  Receipt Date: 20200807
  Transmission Date: 20201103
  Serious: Yes (Hospitalization)
  Sender: FDA-Public Use
  Company Number: CL-MYLANLABS-2020M1069564

PATIENT
  Sex: Male

DRUGS (2)
  1. LEPONEX [Suspect]
     Active Substance: CLOZAPINE
     Dosage: UNK
     Route: 048
  2. LEPONEX [Suspect]
     Active Substance: CLOZAPINE
     Indication: SCHIZOPHRENIA
     Dosage: 300 MILLIGRAM, QD
     Route: 048

REACTIONS (1)
  - Schizophrenia [Recovering/Resolving]
